FAERS Safety Report 5794317-6 (Version None)
Quarter: 2008Q2

REPORT INFORMATION
  Report Type: 
  Country: None (occurrence: None)
  Receive Date: 20080625
  Receipt Date: 20080617
  Transmission Date: 20081010
  Serious: Yes (Hospitalization, Other)
  Sender: FDA-Public Use
  Company Number: 163-21880-08030020

PATIENT
  Age: 76 Year
  Sex: Male

DRUGS (9)
  1. REVLIMID [Suspect]
     Indication: MULTIPLE MYELOMA
     Dosage: 25 MG, 1 IN 1 D, ORAL, 25 MG, 1 IN 1 D, ORAL
     Route: 048
     Dates: start: 20060407, end: 20071101
  2. REVLIMID [Suspect]
     Indication: MULTIPLE MYELOMA
     Dosage: 25 MG, 1 IN 1 D, ORAL, 25 MG, 1 IN 1 D, ORAL
     Route: 048
     Dates: start: 20080222
  3. DEXAMETHASONE TAB [Concomitant]
  4. AMOXICILLIN [Concomitant]
  5. ACYCLOVIR [Concomitant]
  6. ZOFRAN [Concomitant]
  7. MAXZIDE [Concomitant]
  8. LEVOTHROID [Concomitant]
  9. POTASSIUM (POTASSIUM) [Concomitant]

REACTIONS (2)
  - DYSPNOEA [None]
  - RHABDOMYOLYSIS [None]
